FAERS Safety Report 12969999 (Version 1)
Quarter: 2016Q4

REPORT INFORMATION
  Report Type: Report from Study
  Country: CA (occurrence: CA)
  Receive Date: 20161123
  Receipt Date: 20161123
  Transmission Date: 20170207
  Serious: Yes (Other)
  Sender: FDA-Public Use
  Company Number: CA-JNJFOC-20161116918

PATIENT
  Age: 45 Year
  Sex: Female

DRUGS (1)
  1. SIMPONI [Suspect]
     Active Substance: GOLIMUMAB
     Indication: COLITIS ULCERATIVE
     Route: 058
     Dates: start: 20140729

REACTIONS (4)
  - Ileostomy [Recovering/Resolving]
  - Intestinal anastomosis [Recovering/Resolving]
  - Ileostomy closure [Recovering/Resolving]
  - Proctectomy [Recovering/Resolving]

NARRATIVE: CASE EVENT DATE: 20160129
